FAERS Safety Report 5092017-1 (Version None)
Quarter: 2006Q3

REPORT INFORMATION
  Report Type: 
  Country: None (occurrence: None)
  Receive Date: 20060825
  Receipt Date: 20060720
  Transmission Date: 20061208
  Serious: Yes (Other)
  Sender: FDA-Public Use
  Company Number: 2006100563

PATIENT
  Age: 76 Year
  Sex: Female

DRUGS (7)
  1. ZYRTEC [Suspect]
     Indication: DRUG USE FOR UNKNOWN INDICATION
     Dosage: 10 MG, ORAL
     Route: 048
     Dates: start: 20060311, end: 20060701
  2. GLIMEPIRIDE [Concomitant]
  3. GLICLAZIDE (GLICLAZIDE) [Concomitant]
  4. CARBOCISTEINE (CARBOCISTEINE) [Concomitant]
  5. TIPEPIDINE HIBENZATE (TIPEPIDINE HIBENZATE) [Concomitant]
  6. AMBROXOL HYDROCHLORIDE (AMBROXOL HYDROCHLORIDE) [Concomitant]
  7. LEVOFLOXACIN [Concomitant]

REACTIONS (1)
  - PANCYTOPENIA [None]
